FAERS Safety Report 10086642 (Version 7)
Quarter: 2021Q3

REPORT INFORMATION
  Report Type: Spontaneous
  Country: US (occurrence: US)
  Receive Date: 20140418
  Receipt Date: 20210827
  Transmission Date: 20211014
  Serious: Yes (Hospitalization, Other)
  Sender: FDA-Public Use
  Company Number: US-PFIZER INC-2014108574

PATIENT
  Age: 55 Year
  Sex: Female

DRUGS (11)
  1. ELAVIL [Concomitant]
     Active Substance: AMITRIPTYLINE HYDROCHLORIDE
     Dosage: UNK
  2. PRAVASTATIN. [Concomitant]
     Active Substance: PRAVASTATIN
     Dosage: UNK
  3. OMEPRAZOLE. [Concomitant]
     Active Substance: OMEPRAZOLE
     Dosage: UNK
  4. CLONAZEPAM. [Concomitant]
     Active Substance: CLONAZEPAM
     Dosage: UNK
  5. ESTRADIOL. [Concomitant]
     Active Substance: ESTRADIOL
     Dosage: UNK
  6. LORTAB [Concomitant]
     Active Substance: ACETAMINOPHEN\HYDROCODONE BITARTRATE
     Dosage: UNK
  7. PROPRANOLOL [Concomitant]
     Active Substance: PROPRANOLOL HYDROCHLORIDE
     Dosage: UNK
  8. TRAMADOL. [Concomitant]
     Active Substance: TRAMADOL
     Dosage: UNK
  9. LYRICA [Suspect]
     Active Substance: PREGABALIN
     Indication: FIBROMYALGIA
     Dosage: 225 MG, DAILY (1 CAPSULE IN THE MORNING AND 2 CAPSULES IN THE EVENING)
     Route: 048
  10. METRONIDAZOLE. [Concomitant]
     Active Substance: METRONIDAZOLE
     Dosage: UNK
  11. SULFASALAZINE. [Concomitant]
     Active Substance: SULFASALAZINE
     Dosage: UNK

REACTIONS (4)
  - Neoplasm progression [Unknown]
  - Colorectal cancer stage IV [Unknown]
  - Disease progression [Unknown]
  - Crohn^s disease [Unknown]
